FAERS Safety Report 21585011 (Version 1)
Quarter: 2022Q4

REPORT INFORMATION
  Report Type: Spontaneous
  Country: FR (occurrence: FR)
  Receive Date: 20221111
  Receipt Date: 20221111
  Transmission Date: 20230113
  Serious: Yes (Other)
  Sender: FDA-Public Use
  Company Number: None

PATIENT
  Age: 60 Year
  Sex: Male
  Weight: 72 kg

DRUGS (3)
  1. CLOZAPINE [Suspect]
     Active Substance: CLOZAPINE
     Indication: Psychotic disorder
     Dosage: STARTED AT 50MG PER DAY INCREASING IN 25MG INCREMENTS UP TO 200MG, FREQUENCY TIME : 1 DAY, DURATION
     Route: 065
     Dates: start: 20220824, end: 20221003
  2. VALPROMIDE [Suspect]
     Active Substance: VALPROMIDE
     Indication: Affective disorder
     Dosage: GASTRO-RESISTANT FILM-COATED TABLET, STRENGTH  :  300 MG, UNIT DOSE :  1200MG, FREQUENCY TIME : 1 DA
     Route: 065
     Dates: start: 20220808, end: 20221003
  3. LORAZEPAM [Suspect]
     Active Substance: LORAZEPAM
     Indication: Anxiety
     Dosage: UNIT DOSE :   7.5 MG, FREQUENCY TIME : 1 DAY, DURATION : 40 DAYS
     Route: 065
     Dates: start: 20220826, end: 20221003

REACTIONS (1)
  - Hepatocellular injury [Recovering/Resolving]

NARRATIVE: CASE EVENT DATE: 20220929
